FAERS Safety Report 19276991 (Version 1)
Quarter: 2021Q2

REPORT INFORMATION
  Report Type: Report from Study
  Country: None (occurrence: US)
  Receive Date: 20210519
  Receipt Date: 20210519
  Transmission Date: 20210717
  Serious: Yes (Hospitalization)
  Sender: FDA-Public Use
  Company Number: US-ABBVIE-21K-163-3906067-00

PATIENT
  Sex: Female

DRUGS (2)
  1. HUMIRA [Suspect]
     Active Substance: ADALIMUMAB
     Indication: PRODUCT USED FOR UNKNOWN INDICATION
     Route: 058
  2. PFIZER?BIONTECH COVID?19 VACCINE [Suspect]
     Active Substance: TOZINAMERAN
     Indication: COVID-19 IMMUNISATION
     Dosage: PFIZER
     Route: 030
     Dates: start: 2021, end: 2021

REACTIONS (7)
  - Myocardial infarction [Recovering/Resolving]
  - Hepatomegaly [Not Recovered/Not Resolved]
  - Drug interaction [Not Recovered/Not Resolved]
  - Psoriasis [Recovering/Resolving]
  - Hepatic enzyme increased [Unknown]
  - Anxiety [Unknown]
  - Electrocardiogram abnormal [Recovering/Resolving]

NARRATIVE: CASE EVENT DATE: 2021
